FAERS Safety Report 13853488 (Version 1)
Quarter: 2017Q3

REPORT INFORMATION
  Report Type: Spontaneous
  Country: FR (occurrence: FR)
  Receive Date: 20170809
  Receipt Date: 20170809
  Transmission Date: 20171127
  Serious: Yes (Hospitalization, Other)
  Sender: FDA-Public Use
  Company Number: FR-PFIZER INC-2017337260

PATIENT
  Age: 67 Year
  Sex: Male

DRUGS (4)
  1. DIPROSONE /00008502/ [Suspect]
     Active Substance: BETAMETHASONE SODIUM PHOSPHATE
     Indication: PSORIASIS
     Dosage: 1 DF, 1X/DAY
     Route: 003
     Dates: start: 20170628
  2. INFLECTRA [Suspect]
     Active Substance: INFLIXIMAB-DYYB
     Indication: PSORIASIS
     Dosage: 5 MG/KG, CYCLIC (365 MG DAILY)
     Route: 042
     Dates: start: 20170628
  3. METHOTREXATE. [Suspect]
     Active Substance: METHOTREXATE
     Indication: PSORIASIS
     Dosage: 10 MG, WEEKLY
     Route: 048
     Dates: start: 20170628
  4. LOCAPRED [Suspect]
     Active Substance: DESONIDE
     Indication: PSORIASIS
     Dosage: 1 DF, 1X/DAY
     Route: 003
     Dates: start: 20170628

REACTIONS (2)
  - Streptococcal bacteraemia [Recovered/Resolved]
  - Pyrexia [Recovered/Resolved]

NARRATIVE: CASE EVENT DATE: 20170701
